FAERS Safety Report 7990732-0 (Version None)
Quarter: 2011Q4

REPORT INFORMATION
  Report Type: 
  Country: None (occurrence: None)
  Receive Date: 20111219
  Receipt Date: 20111219
  Transmission Date: 20120403
  Serious: Yes (Hospitalization)
  Sender: FDA-Public Use
  Company Number: None

PATIENT
  Age: 61 Year
  Sex: Female
  Weight: 68.038 kg

DRUGS (1)
  1. TORADOL [Suspect]
     Indication: BACK PAIN
     Dosage: INJECTION
     Route: 030
     Dates: start: 20111207, end: 20111207

REACTIONS (2)
  - BLOOD PRESSURE INCREASED [None]
  - SEROTONIN SYNDROME [None]
